FAERS Safety Report 22269331 (Version 1)
Quarter: 2023Q2

REPORT INFORMATION
  Report Type: Spontaneous
  Country: US (occurrence: None)
  Receive Date: 20230428
  Receipt Date: 20230428
  Transmission Date: 20230722
  Serious: Yes (Disabling, Other)
  Sender: FDA-Public Use
  Company Number: None

PATIENT
  Age: 42 Year
  Sex: Female
  Weight: 82.35 kg

DRUGS (16)
  1. PAXLOVID [Suspect]
     Active Substance: NIRMATRELVIR\RITONAVIR
     Indication: COVID-19
     Dosage: FREQUENCY : TWICE A DAY;?
     Route: 048
     Dates: start: 20230420, end: 20230421
  2. GABAPENTIN [Concomitant]
     Active Substance: GABAPENTIN
  3. MONTELUKAST [Concomitant]
     Active Substance: MONTELUKAST SODIUM
  4. BUPROPION [Concomitant]
     Active Substance: BUPROPION
  5. FLUOXETINE [Concomitant]
     Active Substance: FLUOXETINE HYDROCHLORIDE
  6. METFORMIN HYDROCHLORIDE [Concomitant]
     Active Substance: METFORMIN HYDROCHLORIDE
  7. TOPIRAMATE [Concomitant]
     Active Substance: TOPIRAMATE
  8. DOXYCYCLINE [Concomitant]
     Active Substance: DOXYCYCLINE
  9. BENZONATATE [Concomitant]
     Active Substance: BENZONATATE
  10. ALBUTEROL [Concomitant]
     Active Substance: ALBUTEROL
  11. ACETAMINOPHEN [Concomitant]
     Active Substance: ACETAMINOPHEN
  12. IBUPROFEN [Concomitant]
     Active Substance: IBUPROFEN
  13. FISH OIL\OMEGA-3 FATTY ACIDS [Concomitant]
     Active Substance: FISH OIL\OMEGA-3 FATTY ACIDS
  14. NEXIUM [Concomitant]
     Active Substance: ESOMEPRAZOLE MAGNESIUM
  15. ALLEGRA [Concomitant]
     Active Substance: FEXOFENADINE HYDROCHLORIDE
  16. maximum vitality multivitamin [Concomitant]

REACTIONS (9)
  - Taste disorder [None]
  - Headache [None]
  - Dizziness [None]
  - Decreased appetite [None]
  - Vomiting projectile [None]
  - Nausea [None]
  - Abdominal pain [None]
  - Abdominal distension [None]
  - Anosmia [None]

NARRATIVE: CASE EVENT DATE: 20230421
